FAERS Safety Report 7974196-9 (Version None)
Quarter: 2011Q4

REPORT INFORMATION
  Report Type: 
  Country: None (occurrence: None)
  Receive Date: 20111213
  Receipt Date: 20111011
  Transmission Date: 20120403
  Serious: No
  Sender: FDA-Public Use
  Company Number: US-BAYER-2011-099121

PATIENT
  Age: 59 Year
  Sex: Male
  Weight: 73 kg

DRUGS (3)
  1. TYLENOL-500 [Concomitant]
     Indication: ARTHRITIS
  2. ALEVE (CAPLET) [Suspect]
     Indication: DEPRESSION
     Dosage: 2 U, PRN
     Route: 048
     Dates: start: 20110401
  3. WELLBUTRIN [Concomitant]
     Dosage: 1 U, QD
     Route: 048

REACTIONS (1)
  - THERAPEUTIC RESPONSE UNEXPECTED [None]
